FAERS Safety Report 4727096-1 (Version None)
Quarter: 2005Q3

REPORT INFORMATION
  Report Type: 
  Country: None (occurrence: None)
  Receive Date: 20050728
  Receipt Date: 20050719
  Transmission Date: 20060218
  Serious: Yes (Hospitalization)
  Sender: FDA-Public Use
  Company Number: JP-JNJFOC-20050603225

PATIENT
  Sex: Male

DRUGS (12)
  1. RISPERDAL [Suspect]
     Indication: SCHIZOPHRENIA
     Route: 048
     Dates: start: 20040930, end: 20041016
  2. NICARDIPINE HCL [Concomitant]
     Indication: HYPERTENSION
     Route: 048
  3. PANTETHINE [Concomitant]
     Route: 048
  4. BROMVALERYLUREA [Concomitant]
     Route: 048
  5. LORAZEPAM [Concomitant]
     Indication: ANXIETY
     Route: 048
  6. THEOPHYLLINE [Concomitant]
     Route: 048
  7. FENOTEROL HYDROBROMIDE [Concomitant]
     Route: 048
  8. AMBROXOL HYDROCHLORIDE [Concomitant]
     Route: 048
  9. CLONAZEPAM [Concomitant]
     Indication: ANXIETY
     Route: 048
  10. AMLODIPINE BESYLATE [Concomitant]
     Indication: HYPERTENSION
     Route: 048
  11. SODIUM PICOSULFATE [Concomitant]
     Indication: CONSTIPATION
     Route: 048
  12. SENNOSIDE [Concomitant]
     Indication: CONSTIPATION
     Route: 048

REACTIONS (4)
  - BLOOD IRON DECREASED [None]
  - C-REACTIVE PROTEIN INCREASED [None]
  - LUNG NEOPLASM MALIGNANT [None]
  - SUPRAVENTRICULAR EXTRASYSTOLES [None]
